FAERS Safety Report 4919901-0 (Version None)
Quarter: 2006Q1

REPORT INFORMATION
  Report Type: 
  Country: None (occurrence: None)
  Receive Date: 20060223
  Receipt Date: 20060213
  Transmission Date: 20060701
  Serious: Yes (Death, Hospitalization)
  Sender: FDA-Public Use
  Company Number: US-JNJFOC-20051201467

PATIENT
  Sex: Male

DRUGS (2)
  1. RISPERDAL [Suspect]
     Route: 048
  2. ZOLOFT [Concomitant]

REACTIONS (5)
  - ASTHENIA [None]
  - BALANCE DISORDER [None]
  - DEATH [None]
  - ORAL INTAKE REDUCED [None]
  - RENAL DISORDER [None]
